FAERS Safety Report 7283171-1 (Version None)
Quarter: 2011Q1

REPORT INFORMATION
  Report Type: 
  Country: None (occurrence: None)
  Receive Date: 20110209
  Receipt Date: 20110130
  Transmission Date: 20110831
  Serious: Yes (Hospitalization)
  Sender: FDA-Public Use
  Company Number: IL-ROCHE-756586

PATIENT
  Sex: Male
  Weight: 91 kg

DRUGS (7)
  1. FUSID [Concomitant]
     Dates: start: 20100701
  2. DOCETAXEL [Suspect]
     Indication: GASTRIC CANCER
     Dosage: FORM: VIAL. FREQUENCY: DAYS 1 AND 8, EVERY 3 WEEKS. LAST DOSE PRIOR TO SAE: 11 JANUARY 2011.
     Route: 042
     Dates: start: 20100920, end: 20110111
  3. PRILOSEC [Concomitant]
     Dates: start: 20100701
  4. BEVACIZUMAB [Suspect]
     Indication: GASTRIC CANCER
     Dosage: FORM: VIAL. LAST DOSE PRIOR TO SAE: 04 JANUARY 2011.
     Route: 042
     Dates: start: 20100920, end: 20110104
  5. CISPLATIN [Suspect]
     Indication: GASTRIC CANCER
     Dosage: FORM: VIAL. FREQUENCY: DAYS 1 AND 8, EVERY 3 WEEKS. LAST DOSE PRIOR TO SAE: 21 DECEMBER 2010.
     Route: 042
     Dates: start: 20100920, end: 20101221
  6. CLEXANE [Concomitant]
     Dates: start: 20100909
  7. CAPECITABINE [Suspect]
     Indication: GASTRIC CANCER
     Dosage: FREQUENCY: DAYS 1-14, EVERY 3 WEEKS. LAST DOSE PRIOR TO SAE: 21 JANUARY 2011.
     Route: 048
     Dates: start: 20100920, end: 20110121

REACTIONS (1)
  - SMALL INTESTINAL OBSTRUCTION [None]
